FAERS Safety Report 19468102 (Version 6)
Quarter: 2022Q1

REPORT INFORMATION
  Report Type: Report from Study
  Country: NL (occurrence: NL)
  Receive Date: 20210628
  Receipt Date: 20220314
  Transmission Date: 20220423
  Serious: Yes (Hospitalization)
  Sender: FDA-Public Use
  Company Number: NVSC2021NL143231

PATIENT
  Age: 65 Year
  Sex: Male
  Weight: 104 kg

DRUGS (14)
  1. CISPLATIN [Suspect]
     Active Substance: CISPLATIN
     Indication: Non-Hodgkin^s lymphoma
     Dosage: 230 MG, CONT (INFUSION 24H)
     Route: 042
     Dates: start: 20200212
  2. CYTARABINE [Suspect]
     Active Substance: CYTARABINE
     Indication: Non-Hodgkin^s lymphoma
     Dosage: 9200 MG, BID
     Route: 042
     Dates: start: 20200213
  3. RITUXIMAB [Suspect]
     Active Substance: RITUXIMAB
     Indication: Non-Hodgkin^s lymphoma
     Dosage: 800 MG, ONCE/SINGLE
     Route: 042
     Dates: start: 20200214
  4. TESTOSTERONE [Concomitant]
     Active Substance: TESTOSTERONE
     Indication: Androgen deficiency
     Dosage: UNK
     Route: 065
     Dates: start: 2004
  5. MOVICOLON [Concomitant]
     Active Substance: POLYETHYLENE GLYCOL 3350\POTASSIUM CHLORIDE\SODIUM BICARBONATE\SODIUM CHLORIDE
     Indication: Constipation prophylaxis
     Dosage: UNK
     Route: 065
     Dates: start: 20200213, end: 20200213
  6. CARBOMER [Concomitant]
     Active Substance: CARBOMER
     Indication: Dry eye
     Dosage: UNK
     Route: 065
     Dates: start: 20200214, end: 20200214
  7. APREPITANT [Concomitant]
     Active Substance: APREPITANT
     Indication: Prophylactic chemotherapy
     Dosage: UNK
     Route: 065
     Dates: start: 20200212, end: 20200212
  8. APREPITANT [Concomitant]
     Active Substance: APREPITANT
     Dosage: UNK
     Route: 065
     Dates: start: 20200213, end: 20200214
  9. NAPROXEN [Concomitant]
     Active Substance: NAPROXEN
     Indication: Headache
     Dosage: UNK
     Route: 065
  10. CETIRIZINE [Concomitant]
     Active Substance: CETIRIZINE HYDROCHLORIDE
     Indication: Pruritus
     Dosage: UNK
     Route: 065
     Dates: start: 20200212, end: 20200213
  11. FUROSEMIDE [Concomitant]
     Active Substance: FUROSEMIDE
     Indication: Prophylaxis
     Dosage: UNK
     Route: 065
     Dates: start: 20200213, end: 20200213
  12. HYPROMELLOSES [Concomitant]
     Active Substance: HYPROMELLOSES
     Indication: Dry eye
     Dosage: UNK
     Route: 065
     Dates: start: 20200214, end: 20200214
  13. ONDANSETRON [Concomitant]
     Active Substance: ONDANSETRON
     Indication: Prophylactic chemotherapy
     Dosage: UNK
     Route: 065
     Dates: start: 20200212, end: 20200214
  14. OXYCODONE [Concomitant]
     Active Substance: OXYCODONE
     Indication: Headache
     Dosage: UNK
     Route: 065

REACTIONS (1)
  - Febrile neutropenia [Recovered/Resolved]

NARRATIVE: CASE EVENT DATE: 20200226
